FAERS Safety Report 6135880-5 (Version None)
Quarter: 2009Q1

REPORT INFORMATION
  Report Type: 
  Country: None (occurrence: None)
  Receive Date: 20090327
  Receipt Date: 20090316
  Transmission Date: 20090719
  Serious: Yes (Other)
  Sender: FDA-Public Use
  Company Number: JP-MERCK-0903USA04147

PATIENT
  Age: 13 Year
  Sex: Female

DRUGS (3)
  1. PEPCID [Suspect]
     Route: 048
     Dates: start: 20070701, end: 20070701
  2. PEPCID [Suspect]
     Route: 048
     Dates: start: 20070701, end: 20070701
  3. PEPCID [Suspect]
     Route: 065
     Dates: start: 20070701, end: 20070701

REACTIONS (1)
  - ERYTHEMA MULTIFORME [None]
